FAERS Safety Report 5943905-2 (Version None)
Quarter: 2008Q4

REPORT INFORMATION
  Report Type: 
  Country: None (occurrence: None)
  Receive Date: 20081104
  Receipt Date: 20081028
  Transmission Date: 20090506
  Serious: Yes (Hospitalization)
  Sender: FDA-Public Use
  Company Number: 2008100051

PATIENT
  Age: 80 Year
  Sex: Male
  Weight: 70.7611 kg

DRUGS (2)
  1. ASTELIN [Suspect]
     Indication: SEASONAL ALLERGY
     Dosage: 1096 MCG (548 MCG, 2 IN 1 D), IN
     Route: 055
     Dates: start: 20080101
  2. LEVOTHYROXINE SODIUM [Concomitant]

REACTIONS (5)
  - BLOOD PRESSURE FLUCTUATION [None]
  - EAR PAIN [None]
  - HYPERTENSIVE CRISIS [None]
  - TINNITUS [None]
  - VERTIGO [None]
